FAERS Safety Report 5671951-5 (Version None)
Quarter: 2008Q1

REPORT INFORMATION
  Report Type: 
  Country: None (occurrence: None)
  Receive Date: 20080317
  Receipt Date: 20080317
  Transmission Date: 20080703
  Serious: Yes (Other)
  Sender: FDA-Public Use
  Company Number: None

PATIENT
  Age: 50 Year
  Sex: Female
  Weight: 56.6996 kg

DRUGS (1)
  1. APAP TAB [Suspect]

REACTIONS (4)
  - HYPOAESTHESIA [None]
  - MUSCLE SPASMS [None]
  - PAIN [None]
  - PARAESTHESIA [None]
